FAERS Safety Report 6815423-0 (Version None)
Quarter: 2010Q3

REPORT INFORMATION
  Report Type: 
  Country: None (occurrence: None)
  Receive Date: 20100702
  Receipt Date: 20100621
  Transmission Date: 20110219
  Serious: Yes (Hospitalization)
  Sender: FDA-Public Use
  Company Number: AT-JNJFOC-20100607112

PATIENT
  Age: 34 Year
  Sex: Female
  Weight: 62 kg

DRUGS (7)
  1. REMICADE [Suspect]
     Indication: CROHN'S DISEASE
     Route: 042
  2. REMICADE [Suspect]
     Dosage: 9 INFUSIONS UNSPECIFIED DATES PRIOR TO ENROLLMENT IN NON-INTERVENTIONAL TRIAL
     Route: 042
  3. REMICADE [Suspect]
     Dosage: 9 INFUSIONS
     Route: 042
  4. AZATHIOPRINE [Concomitant]
  5. URSO FALK [Concomitant]
  6. CAL-D-VITA [Concomitant]
  7. TRAMADOL HCL [Concomitant]

REACTIONS (4)
  - ANAL ABSCESS [None]
  - DRUG INEFFECTIVE [None]
  - FISTULA [None]
  - SUBCUTANEOUS ABSCESS [None]
